FAERS Safety Report 9846483 (Version 1)
Quarter: 2013Q4

REPORT INFORMATION
  Report Type: Spontaneous
  Country: US (occurrence: None)
  Receive Date: 20131223
  Receipt Date: 20131223
  Transmission Date: 20140711
  Serious: No
  Sender: FDA-Public Use
  Company Number: CABO-13003411

PATIENT
  Age: 68 Year
  Sex: Male
  Weight: 105 kg

DRUGS (9)
  1. COMETRIQ (CABOZANTINE) CAPSULE [Suspect]
     Indication: PROSTATE CANCER
     Route: 048
     Dates: start: 20130514, end: 2013
  2. DIOVAN(VALSARTAN) [Concomitant]
  3. LASIX(FUROSEMIDE SODIUM) [Concomitant]
  4. POTASSIUM(POTASSIUM BICARBONATE, POTASSIUM BITARTRATE) [Concomitant]
  5. LIPITOR (ATORVASTATIN CALCIUM) [Concomitant]
  6. HYDROCODONE(HYDROCODONE BITARTRATE) [Concomitant]
  7. HYDROMORPHONE(HYDROMORPHONE) [Concomitant]
  8. XGEVA(DENOSUMAB) [Concomitant]
  9. LUPRON(LEUPRORELIN ACETATE) [Concomitant]

REACTIONS (5)
  - Malaise [None]
  - Diarrhoea [None]
  - Fatigue [None]
  - Asthenia [None]
  - Off label use [None]
